FAERS Safety Report 7681127-8 (Version None)
Quarter: 2011Q3

REPORT INFORMATION
  Report Type: 
  Country: None (occurrence: None)
  Receive Date: 20110812
  Receipt Date: 20110808
  Transmission Date: 20111222
  Serious: No
  Sender: FDA-Public Use
  Company Number: US-PFIZER INC-2011142950

PATIENT
  Sex: Female
  Weight: 61.224 kg

DRUGS (1)
  1. ADVIL LIQUI-GELS [Suspect]
     Indication: MUSCLE STRAIN
     Dosage: 200 MG, 2X/DAY
     Route: 048
     Dates: start: 20110623, end: 20110623

REACTIONS (2)
  - HYPERHIDROSIS [None]
  - HYPOAESTHESIA ORAL [None]
